FAERS Safety Report 22982777 (Version 2)
Quarter: 2024Q4

REPORT INFORMATION
  Report Type: Report from Study
  Country: US (occurrence: US)
  Receive Date: 20230926
  Receipt Date: 20241118
  Transmission Date: 20250114
  Serious: Yes (Hospitalization, Other)
  Sender: NOVARTIS
  Company Number: US-002147023-NVSC2023US203111

PATIENT
  Age: 76 Year
  Sex: Male

DRUGS (2)
  1. ENTRESTO [Suspect]
     Active Substance: SACUBITRIL\VALSARTAN
     Indication: Product used for unknown indication
     Dosage: UNK (STRENGTH: 24/26)
     Route: 065
  2. ENTRESTO [Suspect]
     Active Substance: SACUBITRIL\VALSARTAN
     Dosage: UNK (STRENGTH: 49/51)
     Route: 065

REACTIONS (9)
  - Cardiac arrest [Unknown]
  - Parkinson^s disease [Unknown]
  - Tremor [Unknown]
  - Hypotension [Unknown]
  - Dizziness [Unknown]
  - Skin lesion [Unknown]
  - Muscular weakness [Unknown]
  - Fatigue [Unknown]
  - Blood potassium decreased [Unknown]
